FAERS Safety Report 7055855-1 (Version None)
Quarter: 2010Q4

REPORT INFORMATION
  Report Type: 
  Country: None (occurrence: None)
  Receive Date: 20101021
  Receipt Date: 20101018
  Transmission Date: 20110411
  Serious: Yes (Other)
  Sender: FDA-Public Use
  Company Number: DE-MERCK-1007DEU00094

PATIENT
  Age: 38 Year
  Sex: Female
  Weight: 74 kg

DRUGS (3)
  1. PROSCAR [Suspect]
     Route: 065
     Dates: start: 20050101, end: 20100730
  2. PROSCAR [Suspect]
     Route: 065
     Dates: start: 20101001
  3. FLUVASTATIN SODIUM [Concomitant]
     Route: 065
     Dates: start: 20060101

REACTIONS (2)
  - ABORTION SPONTANEOUS [None]
  - DRUG EXPOSURE DURING PREGNANCY [None]
